FAERS Safety Report 10092363 (Version 1)
Quarter: 2014Q2

REPORT INFORMATION
  Report Type: Spontaneous
  Country: US (occurrence: US)
  Receive Date: 20140421
  Receipt Date: 20140421
  Transmission Date: 20141212
  Serious: No
  Sender: FDA-Public Use
  Company Number: US-SANOFI-AVENTIS-2013SA044129

PATIENT
  Age: 70 Year
  Sex: Male
  Weight: 90.71 kg

DRUGS (8)
  1. ALLEGRA [Suspect]
     Indication: HYPERSENSITIVITY
     Route: 048
     Dates: start: 20130415
  2. ALLEGRA [Suspect]
     Indication: HYPERSENSITIVITY
     Route: 048
     Dates: start: 20130415
  3. HUMALOG [Suspect]
  4. PRILOSEC [Concomitant]
  5. ALTACE [Concomitant]
  6. PRAVACHOL [Concomitant]
  7. OXYBUTYNIN [Concomitant]
  8. EXELON [Concomitant]

REACTIONS (2)
  - Blood glucose increased [Not Recovered/Not Resolved]
  - Multiple allergies [Not Recovered/Not Resolved]
